FAERS Safety Report 6486015-0 (Version None)
Quarter: 2009Q4

REPORT INFORMATION
  Report Type: 
  Country: None (occurrence: None)
  Receive Date: 20091209
  Receipt Date: 20090716
  Transmission Date: 20100525
  Serious: No
  Sender: FDA-Public Use
  Company Number: US-AMGEN-KDL356328

PATIENT
  Sex: Male

DRUGS (2)
  1. ENBREL [Suspect]
     Indication: RHEUMATOID ARTHRITIS
     Route: 058
     Dates: start: 20061218
  2. METHOTREXATE [Concomitant]
     Route: 048
     Dates: start: 20070115

REACTIONS (7)
  - BACK DISORDER [None]
  - BACK PAIN [None]
  - JOINT SWELLING [None]
  - MUSCULAR WEAKNESS [None]
  - OEDEMA PERIPHERAL [None]
  - PARAESTHESIA [None]
  - RHEUMATOID ARTHRITIS [None]
